FAERS Safety Report 16181473 (Version 14)
Quarter: 2022Q2

REPORT INFORMATION
  Report Type: Report from Study
  Country: US (occurrence: US)
  Receive Date: 20190410
  Receipt Date: 20220421
  Transmission Date: 20220721
  Serious: Yes (Hospitalization, Other)
  Sender: FDA-Public Use
  Company Number: US-BRISTOL-MYERS SQUIBB COMPANY-BMS-2019-034533

PATIENT
  Age: 59 Year
  Sex: Female

DRUGS (4)
  1. ELIQUIS [Suspect]
     Active Substance: APIXABAN
     Indication: Cerebrovascular accident prophylaxis
     Dosage: 20 MG DAILY
     Route: 065
     Dates: start: 20181101
  2. ELIQUIS [Suspect]
     Active Substance: APIXABAN
     Dosage: 20 MG DAILY
     Route: 065
     Dates: start: 20210719
  3. SOTALOL [Concomitant]
     Active Substance: SOTALOL
     Indication: Product used for unknown indication
     Dosage: UNK
     Route: 065
     Dates: start: 2008
  4. ROSUVASTATIN [Concomitant]
     Active Substance: ROSUVASTATIN
     Indication: Product used for unknown indication
     Dosage: UNK
     Route: 065

REACTIONS (12)
  - Atrial fibrillation [Recovered/Resolved]
  - Renal failure [Recovered/Resolved]
  - Thinking abnormal [Unknown]
  - Sinusitis [Recovered/Resolved]
  - Memory impairment [Recovered/Resolved]
  - Discomfort [Recovered/Resolved]
  - Prescribed overdose [Unknown]
  - Musculoskeletal discomfort [Recovered/Resolved]
  - Oral disorder [Recovered/Resolved]
  - Heart rate increased [Recovered/Resolved]
  - Hyperhidrosis [Recovered/Resolved]
  - Somnolence [Unknown]

NARRATIVE: CASE EVENT DATE: 20181101
